FAERS Safety Report 8068762-2 (Version None)
Quarter: 2012Q1

REPORT INFORMATION
  Report Type: 
  Country: None (occurrence: None)
  Receive Date: 20120124
  Receipt Date: 20111227
  Transmission Date: 20120608
  Serious: Yes (Other)
  Sender: FDA-Public Use
  Company Number: US-AMGEN-USASP2011050624

PATIENT
  Age: 46 Year
  Sex: Female
  Weight: 87.075 kg

DRUGS (3)
  1. CLONIDINE [Concomitant]
     Dosage: UNK
     Dates: start: 20041104
  2. XGEVA [Suspect]
     Indication: METASTASES TO BONE
     Dosage: 120 MG, Q4WK
     Dates: start: 20110727
  3. SYNTHROID [Concomitant]
     Dosage: UNK
     Dates: start: 20040504

REACTIONS (1)
  - OSTEONECROSIS OF JAW [None]
